FAERS Safety Report 5850457-4 (Version None)
Quarter: 2008Q3

REPORT INFORMATION
  Report Type: 
  Country: None (occurrence: None)
  Receive Date: 20080818
  Receipt Date: 20080805
  Transmission Date: 20090109
  Serious: Yes (Death)
  Sender: FDA-Public Use
  Company Number: 91572

PATIENT
  Age: 52 Year
  Sex: Female

DRUGS (2)
  1. SIMVASTATIN [Suspect]
  2. ACETAMINOPHEN [Suspect]

REACTIONS (1)
  - HEPATOCELLULAR INJURY [None]
